FAERS Safety Report 12676516 (Version 1)
Quarter: 2016Q3

REPORT INFORMATION
  Report Type: Spontaneous
  Country: US (occurrence: US)
  Receive Date: 20160823
  Receipt Date: 20160823
  Transmission Date: 20161109
  Serious: No
  Sender: FDA-Public Use
  Company Number: US-GLAXOSMITHKLINE-US2016GSK116452

PATIENT
  Age: 45 Year
  Sex: Female

DRUGS (1)
  1. TANZEUM [Suspect]
     Active Substance: ALBIGLUTIDE
     Indication: GLUCOSE TOLERANCE IMPAIRED
     Dosage: 30 UG, WE
     Route: 042
     Dates: start: 201606

REACTIONS (4)
  - Device leakage [Unknown]
  - Product preparation error [Unknown]
  - Exposure via skin contact [Unknown]
  - Device use error [Unknown]

NARRATIVE: CASE EVENT DATE: 20160809
